FAERS Safety Report 9215342 (Version 2)
Quarter: 2013Q2

REPORT INFORMATION
  Report Type: Spontaneous
  Country: BR (occurrence: BR)
  Receive Date: 20130405
  Receipt Date: 20130409
  Transmission Date: 20140414
  Serious: Yes (Other)
  Sender: FDA-Public Use
  Company Number: BR-PFIZER INC-2013091259

PATIENT
  Age: 70 Year
  Sex: Female

DRUGS (6)
  1. CHAMPIX [Suspect]
     Indication: SMOKING CESSATION THERAPY
     Dosage: UNK
     Route: 048
     Dates: start: 2013, end: 2013
  2. CHAMPIX [Suspect]
     Dosage: 1 MG, (2 TABLETS DAILY)
     Route: 048
     Dates: start: 2013, end: 2013
  3. CHAMPIX [Suspect]
     Dosage: 1 MG, 2X/DAY (EVERY 12 HOURS)
     Route: 048
     Dates: start: 2013
  4. RIVOTRIL [Concomitant]
     Indication: INSOMNIA
     Dosage: STRENGTH 2 MG, HALF A TABLET, UNK
  5. LOSARTAN [Concomitant]
     Indication: BLOOD PRESSURE INCREASED
     Dosage: UNK
  6. PANTOPRAZOLE [Concomitant]
     Indication: REFLUX GASTRITIS
     Dosage: UNK

REACTIONS (8)
  - Dysentery [Unknown]
  - Anxiety [Not Recovered/Not Resolved]
  - Nervousness [Unknown]
  - Affect lability [Unknown]
  - Pain [Not Recovered/Not Resolved]
  - Insomnia [Unknown]
  - Malaise [Unknown]
  - Decreased appetite [Not Recovered/Not Resolved]
